FAERS Safety Report 11185164 (Version 1)
Quarter: 2015Q2

REPORT INFORMATION
  Report Type: Spontaneous
  Country: US (occurrence: None)
  Receive Date: 20150611
  Receipt Date: 20150611
  Transmission Date: 20150821
  Serious: Yes (Hospitalization, Disabling)
  Sender: FDA-Public Use
  Company Number: None

PATIENT
  Age: 56 Year
  Sex: Male
  Weight: 90.72 kg

DRUGS (2)
  1. ALBUTEROL SULFATE. [Concomitant]
     Active Substance: ALBUTEROL SULFATE
  2. ATORVASTATIN 10 MG [Suspect]
     Active Substance: ATORVASTATIN
     Indication: BLOOD CHOLESTEROL INCREASED
     Dosage: 1 PILL NIGHTLY AT BEDTIME TAKEN BY MOUTH
     Route: 048
     Dates: start: 20140409, end: 20141118

REACTIONS (2)
  - Temporal lobe epilepsy [None]
  - Amnesia [None]

NARRATIVE: CASE EVENT DATE: 20141119
